FAERS Safety Report 18550723 (Version 3)
Quarter: 2021Q4

REPORT INFORMATION
  Report Type: Spontaneous
  Country: US (occurrence: US)
  Receive Date: 20201126
  Receipt Date: 20211220
  Transmission Date: 20220303
  Serious: Yes (Hospitalization)
  Sender: FDA-Public Use
  Company Number: US-PFIZER INC-2020466109

PATIENT
  Age: 81 Year
  Sex: Male

DRUGS (1)
  1. LIPITOR [Suspect]
     Active Substance: ATORVASTATIN CALCIUM
     Indication: Blood cholesterol increased
     Dosage: 10 MG

REACTIONS (4)
  - Fall [Unknown]
  - Gait disturbance [Unknown]
  - Restlessness [Unknown]
  - Illness [Unknown]
